FAERS Safety Report 10035271 (Version 1)
Quarter: 2014Q1

REPORT INFORMATION
  Report Type: Spontaneous
  Country: US (occurrence: None)
  Receive Date: 20140306
  Receipt Date: 20140306
  Transmission Date: 20141002
  Serious: Yes (Other)
  Sender: FDA-Public Use
  Company Number: 163-21880-13122324

PATIENT
  Age: 72 Year
  Sex: Female
  Weight: 67.13 kg

DRUGS (7)
  1. REVLIMID (LENALIDOMIDE) (10 MILLIGRAM, CAPSULES) [Suspect]
     Indication: MYELODYSPLASTIC SYNDROME
     Dosage: 10 MG, 1 IN 1 D, PO
     Route: 048
  2. CENTRUM SILVER (CENTRUM SILVER) [Concomitant]
  3. PROVENTIL INHALER (SALBUTAMOL) [Concomitant]
  4. LEVETIRACETAM (LEVETIRACETAM) [Concomitant]
  5. IRON (IRON) [Concomitant]
  6. VITAMIN B 12 (VITAMIN B 12) [Concomitant]
  7. BABY ASPRIN (ACETYLSALICYLIC ACID) [Concomitant]

REACTIONS (2)
  - Incorrect dose administered [None]
  - Muscle spasms [None]
